FAERS Safety Report 14572020 (Version 1)
Quarter: 2018Q1

REPORT INFORMATION
  Report Type: Spontaneous
  Country: US (occurrence: US)
  Receive Date: 20180223
  Receipt Date: 20180223
  Transmission Date: 20180509
  Serious: No
  Sender: FDA-Public Use
  Company Number: None

PATIENT
  Age: 33 Year
  Sex: Male

DRUGS (1)
  1. ORKAMBI [Suspect]
     Active Substance: IVACAFTOR\LUMACAFTOR
     Indication: CYSTIC FIBROSIS
     Dosage: 200-125MG 2 TAB / TWICE DAIL ORAL
     Route: 048
     Dates: start: 20170831

REACTIONS (4)
  - Eye disorder [None]
  - Drug dose omission [None]
  - Cyst [None]
  - Pain [None]

NARRATIVE: CASE EVENT DATE: 20180101
